FAERS Safety Report 18226693 (Version 2)
Quarter: 2020Q3

REPORT INFORMATION
  Report Type: Report from Study
  Country: EG (occurrence: EG)
  Receive Date: 20200903
  Receipt Date: 20200903
  Transmission Date: 20201103
  Serious: Yes (Other)
  Sender: FDA-Public Use
  Company Number: NVSC2020EG234564

PATIENT
  Age: 60 Year
  Sex: Male

DRUGS (1)
  1. TASIGNA [Suspect]
     Active Substance: NILOTINIB
     Indication: CHRONIC MYELOID LEUKAEMIA
     Dosage: 2 DF, QD (200MG 2 CAP DAILY 400/DAY)
     Route: 065

REACTIONS (2)
  - Myalgia [Recovered/Resolved]
  - Eye colour change [Recovered/Resolved]

NARRATIVE: CASE EVENT DATE: 2019
